FAERS Safety Report 22287333 (Version 1)
Quarter: 2023Q2

REPORT INFORMATION
  Report Type: Spontaneous
  Country: FR (occurrence: FR)
  Receive Date: 20230505
  Receipt Date: 20230505
  Transmission Date: 20230721
  Serious: Yes (Life-Threatening)
  Sender: FDA-Public Use
  Company Number: FR-SUN PHARMACEUTICAL INDUSTRIES LTD-2023RR-387200

PATIENT
  Age: 61 Year
  Sex: Male
  Weight: 121 kg

DRUGS (6)
  1. ZOPICLONE [Suspect]
     Active Substance: ZOPICLONE
     Indication: Toxicity to various agents
     Dosage: UNK
     Route: 048
  2. ZOLPIDEM [Suspect]
     Active Substance: ZOLPIDEM TARTRATE
     Indication: Product used for unknown indication
     Dosage: UNK
     Route: 048
  3. CORDARONE [Concomitant]
     Active Substance: AMIODARONE HYDROCHLORIDE
     Indication: Atrial fibrillation
     Dosage: 200 MILLIGRAM, QD
     Route: 048
  4. XARELTO [Concomitant]
     Active Substance: RIVAROXABAN
     Indication: Atrial fibrillation
     Dosage: 20 MILLIGRAM, QD
     Route: 048
  5. NALMEFENE HYDROCHLORIDE DIHYDRATE [Concomitant]
     Active Substance: NALMEFENE HYDROCHLORIDE DIHYDRATE
     Indication: Alcoholism
     Dosage: UNK
     Route: 048
  6. TRIMEPRAZINE [Concomitant]
     Active Substance: TRIMEPRAZINE
     Indication: Insomnia
     Dosage: UNK
     Route: 048

REACTIONS (2)
  - Coma [Recovered/Resolved]
  - Poisoning deliberate [Recovered/Resolved]

NARRATIVE: CASE EVENT DATE: 20220613
